FAERS Safety Report 7024019-X (Version None)
Quarter: 2010Q4

REPORT INFORMATION
  Report Type: 
  Country: None (occurrence: None)
  Receive Date: 20101001
  Receipt Date: 20100921
  Transmission Date: 20110411
  Serious: No
  Sender: FDA-Public Use
  Company Number: US-JNJFOC-20100907063

PATIENT
  Sex: Male
  Weight: 106.6 kg

DRUGS (4)
  1. SANDOZ FENTANYL TRANSDERMAL SYSTEM [Suspect]
     Indication: PAIN
     Dosage: 0781-7241-55
     Route: 062
  2. ACTOS [Concomitant]
     Route: 048
  3. INSULIN [Concomitant]
     Indication: TYPE 1 DIABETES MELLITUS
     Route: 058
  4. VYTORIN [Concomitant]
     Route: 048

REACTIONS (3)
  - DRUG ADMINISTERED AT INAPPROPRIATE SITE [None]
  - PRODUCT ADHESION ISSUE [None]
  - TREATMENT NONCOMPLIANCE [None]
